FAERS Safety Report 15506382 (Version 5)
Quarter: 2018Q4

REPORT INFORMATION
  Report Type: Report from Study
  Country: None (occurrence: US)
  Receive Date: 20181016
  Receipt Date: 20181113
  Transmission Date: 20190205
  Serious: Yes (Other)
  Sender: FDA-Public Use
  Company Number: US-ABBVIE-18K-163-2516383-00

PATIENT
  Age: 50 Year
  Sex: Female
  Weight: 62.2 kg

DRUGS (17)
  1. ALPRAZOLAM. [Concomitant]
     Active Substance: ALPRAZOLAM
     Indication: ANXIETY
  2. IMDUR [Concomitant]
     Active Substance: ISOSORBIDE MONONITRATE
     Indication: CARDIAC DISORDER
  3. HUMIRA [Suspect]
     Active Substance: ADALIMUMAB
     Route: 058
     Dates: start: 2018
  4. PHENERGAN [Concomitant]
     Active Substance: PROMETHAZINE HYDROCHLORIDE
     Indication: VOMITING
  5. PREDNISONE. [Concomitant]
     Active Substance: PREDNISONE
     Indication: CROHN^S DISEASE
  6. POTASSIUM [Concomitant]
     Active Substance: POTASSIUM
     Indication: MINERAL SUPPLEMENTATION
  7. ZOCOR [Concomitant]
     Active Substance: SIMVASTATIN
     Indication: CARDIAC DISORDER
  8. HUMIRA [Suspect]
     Active Substance: ADALIMUMAB
     Indication: CROHN^S DISEASE
     Route: 058
     Dates: start: 2014, end: 201711
  9. NITROGLYCERIN. [Concomitant]
     Active Substance: NITROGLYCERIN
     Indication: CARDIAC DISORDER
  10. FUROSEMIDE. [Concomitant]
     Active Substance: FUROSEMIDE
     Indication: PERIPHERAL SWELLING
  11. METOCLOPRAMIDE. [Concomitant]
     Active Substance: METOCLOPRAMIDE
     Indication: GASTROINTESTINAL MOTILITY DISORDER
  12. HUMIRA [Suspect]
     Active Substance: ADALIMUMAB
     Route: 058
     Dates: start: 2018, end: 201809
  13. CLOPIDOGREL [Concomitant]
     Active Substance: CLOPIDOGREL BISULFATE
     Indication: ANTICOAGULANT THERAPY
  14. PREVACID [Concomitant]
     Active Substance: LANSOPRAZOLE
     Indication: GASTROOESOPHAGEAL REFLUX DISEASE
  15. PHENERGAN [Concomitant]
     Active Substance: PROMETHAZINE HYDROCHLORIDE
     Indication: NAUSEA
  16. REMERON [Concomitant]
     Active Substance: MIRTAZAPINE
     Indication: INSOMNIA
  17. METOPROLOL. [Concomitant]
     Active Substance: METOPROLOL
     Indication: CARDIAC DISORDER

REACTIONS (20)
  - Asthenia [Unknown]
  - Head discomfort [Unknown]
  - Osteoporosis [Not Recovered/Not Resolved]
  - Intervertebral disc protrusion [Recovering/Resolving]
  - Constipation [Unknown]
  - Central nervous system lesion [Unknown]
  - Fatigue [Unknown]
  - Dyspnoea exertional [Unknown]
  - Chest pain [Not Recovered/Not Resolved]
  - Brain neoplasm malignant [Unknown]
  - Respiratory fume inhalation disorder [Unknown]
  - Brain oedema [Unknown]
  - Coronary artery disease [Unknown]
  - Breast cancer metastatic [Unknown]
  - Cardiac disorder [Unknown]
  - Fibromyalgia [Not Recovered/Not Resolved]
  - Diarrhoea haemorrhagic [Unknown]
  - Crohn^s disease [Unknown]
  - Cataract [Not Recovered/Not Resolved]
  - Vomiting [Unknown]

NARRATIVE: CASE EVENT DATE: 201506
